FAERS Safety Report 8533326-0 (Version None)
Quarter: 2012Q3

REPORT INFORMATION
  Report Type: 
  Country: None (occurrence: None)
  Receive Date: 20120717
  Receipt Date: 20120717
  Transmission Date: 20120928
  Serious: Yes (Death, Life-Threatening, Hospitalization)
  Sender: FDA-Public Use
  Company Number: None

PATIENT
  Sex: Male
  Weight: 44 kg

DRUGS (5)
  1. TEV TROPIN 5 MG VIAL TEVA PHARMACEUTICALS USA [Suspect]
     Indication: GROWTH HORMONE DEFICIENCY
     Dosage: 1.4 MG DAILY SUBCUTANEOUS
     Route: 058
     Dates: start: 20110501, end: 20111018
  2. TEV TROPIN 5 MG VIAL TEVA PHARMACEUTICALS USA [Suspect]
     Indication: FAILURE TO THRIVE
     Dosage: 1.4 MG DAILY SUBCUTANEOUS
     Route: 058
     Dates: start: 20110501, end: 20111018
  3. VASOTEC [Concomitant]
  4. VITAMIN D [Concomitant]
  5. NORDITROPIN [Suspect]

REACTIONS (3)
  - METASTASES TO LIVER [None]
  - MALIGNANT PERITONEAL NEOPLASM [None]
  - NEOPLASM RECURRENCE [None]
